FAERS Safety Report 20476190 (Version 1)
Quarter: 2022Q1

REPORT INFORMATION
  Report Type: Spontaneous
  Country: GB (occurrence: GB)
  Receive Date: 20220215
  Receipt Date: 20220215
  Transmission Date: 20220423
  Serious: Yes (Other)
  Sender: FDA-Public Use
  Company Number: None

PATIENT
  Age: 51 Year
  Sex: Female
  Weight: 87 kg

DRUGS (5)
  1. NAPROXEN [Suspect]
     Active Substance: NAPROXEN
     Indication: Product used for unknown indication
     Dosage: TAKE ONE TWICE DAILY, IF REQUIRED
     Dates: start: 20211123
  2. DIAZEPAM [Concomitant]
     Active Substance: DIAZEPAM
     Dosage: UNK UNK, BID, TWICE DAILY
     Dates: start: 20211221, end: 20211226
  3. GABAPENTIN [Concomitant]
     Active Substance: GABAPENTIN
     Dosage: 2 DOSAGE FORM, TID, 2 TO BE TAKEN THREE TIMES DAILY
     Dates: start: 20201101
  4. OMEPRAZOLE [Concomitant]
     Active Substance: OMEPRAZOLE
     Dosage: 1 DOSAGE FORM, QD, TAKE ONE CAPSULE ONCE DAILY
     Dates: start: 20210312
  5. RAMIPRIL [Concomitant]
     Active Substance: RAMIPRIL
     Dosage: TAKE ONE DAILY - HOME BP MONITORING IN 2ND WEEK...
     Dates: start: 20211203, end: 20211231

REACTIONS (4)
  - Swelling face [Unknown]
  - Pharyngeal swelling [Unknown]
  - Rash erythematous [Recovered/Resolved]
  - Dyspnoea [Unknown]

NARRATIVE: CASE EVENT DATE: 20220209
